FAERS Safety Report 10565495 (Version 2)
Quarter: 2014Q4

REPORT INFORMATION
  Report Type: Spontaneous
  Country: US (occurrence: None)
  Receive Date: 20141103
  Receipt Date: 20141117
  Transmission Date: 20150529
  Serious: Yes (Other)
  Sender: FDA-Public Use
  Company Number: 2014-US-013987

PATIENT
  Age: 79 Year
  Sex: Female

DRUGS (1)
  1. XYREM [Suspect]
     Active Substance: SODIUM OXYBATE
     Indication: NARCOLEPSY
     Route: 048
     Dates: start: 201108, end: 2011

REACTIONS (3)
  - Fall [None]
  - Hospitalisation [None]
  - Lower limb fracture [None]

NARRATIVE: CASE EVENT DATE: 20141021
